FAERS Safety Report 9012196 (Version 5)
Quarter: 2013Q1

REPORT INFORMATION
  Report Type: Spontaneous
  Country: JP (occurrence: JP)
  Receive Date: 20130114
  Receipt Date: 20130227
  Transmission Date: 20140127
  Serious: Yes (Hospitalization)
  Sender: FDA-Public Use
  Company Number: JP-009507513-1301JPN003267

PATIENT
  Age: 57 Year
  Sex: Male
  Weight: 70 kg

DRUGS (7)
  1. PEGINTRON [Suspect]
     Indication: CHRONIC HEPATITIS C
     Dosage: 1.4 MICROGRAM PER KILOGRAM PER WEEK
     Route: 058
     Dates: start: 20121206, end: 20121217
  2. REBETOL [Suspect]
     Indication: CHRONIC HEPATITIS C
     Dosage: 800 MG, QD
     Route: 048
     Dates: start: 20121206, end: 20121217
  3. TELAVIC [Suspect]
     Indication: CHRONIC HEPATITIS C
     Dosage: 1500 MG, QD
     Route: 048
     Dates: start: 20121206, end: 20121217
  4. LIVALO [Concomitant]
     Dosage: 2 MG, QD(FORMULATION-POR)
     Route: 048
     Dates: start: 20121206, end: 20121217
  5. EPADEL S [Concomitant]
     Dosage: 1800 MG, QD (FORMULATION-POR)
     Route: 048
     Dates: start: 20121206, end: 20121217
  6. FEBURIC [Concomitant]
     Dosage: 10 MG, QD(FORMULATION-POR)
     Route: 048
     Dates: start: 20121212, end: 20121221
  7. PARIET [Concomitant]
     Dosage: 10 MG, QD (FORMULATION-POR)
     Route: 048
     Dates: start: 20121214

REACTIONS (2)
  - Pneumonia [Recovering/Resolving]
  - Haemoptysis [Recovering/Resolving]
